FAERS Safety Report 18918764 (Version 5)
Quarter: 2021Q1

REPORT INFORMATION
  Report Type: Spontaneous
  Country: US (occurrence: US)
  Receive Date: 20210220
  Receipt Date: 20210331
  Transmission Date: 20210420
  Serious: No
  Sender: FDA-Public Use
  Company Number: NVSC2021US036393

PATIENT
  Age: 70 Year
  Sex: Female

DRUGS (2)
  1. VOLTAREN [Suspect]
     Active Substance: DICLOFENAC SODIUM
     Indication: TENDONITIS
     Dosage: UNK, QID
     Route: 061
     Dates: start: 20210210, end: 20210223
  2. VOLTAREN [Suspect]
     Active Substance: DICLOFENAC SODIUM
     Dosage: UNK
     Route: 065

REACTIONS (4)
  - Drug effective for unapproved indication [Recovered/Resolved]
  - Product administered at inappropriate site [Unknown]
  - Product prescribing error [Unknown]
  - Off label use [Unknown]
